FAERS Safety Report 8810348 (Version 2)
Quarter: 2012Q4

REPORT INFORMATION
  Report Type: 
  Country: US (occurrence: US)
  Receive Date: 20120926
  Receipt Date: 20121114
  Transmission Date: 20130627
  Serious: No
  Sender: FDA-Public Use
  Company Number: US-009507513-1209USA007193

PATIENT
  Sex: Male
  Weight: 145 kg

DRUGS (7)
  1. SINGULAIR [Suspect]
     Indication: ASTHMA
     Dosage: 4 mg, qd
     Route: 048
     Dates: start: 20111103, end: 20120803
  2. SINGULAIR [Suspect]
     Indication: SINUSITIS
  3. SINGULAIR [Suspect]
     Indication: TONSILLAR HYPERTROPHY
  4. SINGULAIR [Suspect]
     Indication: SLEEP APNOEA SYNDROME
  5. FLOVENT [Concomitant]
     Dosage: 4 puffs
  6. FLONASE [Concomitant]
  7. PREDNISONE [Concomitant]

REACTIONS (3)
  - Psychomotor hyperactivity [Recovering/Resolving]
  - Overdose [Unknown]
  - Fatigue [Recovering/Resolving]
